FAERS Safety Report 9018940 (Version 1)
Quarter: 2013Q1

REPORT INFORMATION
  Report Type: Spontaneous
  Country: US (occurrence: US)
  Receive Date: 20130118
  Receipt Date: 20130118
  Transmission Date: 20140127
  Serious: Yes (Other)
  Sender: FDA-Public Use
  Company Number: CHPA2013US001210

PATIENT
  Age: 70 Year
  Sex: Male

DRUGS (4)
  1. MAALOX ADV MAXIMUM STRENGTH ANTACID/ANTIGAS [Suspect]
     Indication: GASTROOESOPHAGEAL REFLUX DISEASE
     Dosage: 6 TSP, PRN
  2. EXCEDRIN EXTRA STRENGTH [Concomitant]
     Indication: HEADACHE
     Dosage: 2 OR 3, UNK
     Route: 048
     Dates: start: 1960
  3. DRUG THERAPY NOS [Concomitant]
     Indication: HEADACHE
     Dosage: UNK, UNK
     Route: 048
  4. BAYER ASPIRIN [Concomitant]
     Indication: ANTICOAGULANT THERAPY
     Dosage: 81 MG, QD
     Route: 048

REACTIONS (6)
  - Osteomyelitis [Recovered/Resolved]
  - Limb injury [Recovered/Resolved]
  - Contusion [Recovered/Resolved]
  - Pain in extremity [Recovered/Resolved]
  - Off label use [Unknown]
  - Incorrect dose administered [Unknown]
